FAERS Safety Report 8682365 (Version 2)
Quarter: 2012Q4

REPORT INFORMATION
  Report Type: 
  Country: CN (occurrence: CN)
  Receive Date: 20120725
  Receipt Date: 20120906
  Transmission Date: 20130627
  Serious: Yes (Hospitalization)
  Sender: FDA-Public Use
  Company Number: CN-BRISTOL-MYERS SQUIBB COMPANY-16776957

PATIENT
  Age: 49 Year
  Sex: Male
  Weight: 66 kg

DRUGS (1)
  1. BARACLUDE [Suspect]
     Route: 048
     Dates: start: 201107, end: 20120717

REACTIONS (1)
  - Blood creatine phosphokinase increased [Unknown]
